FAERS Safety Report 5857823-1 (Version None)
Quarter: 2008Q3

REPORT INFORMATION
  Report Type: 
  Country: None (occurrence: None)
  Receive Date: 20080826
  Receipt Date: 20080815
  Transmission Date: 20090109
  Serious: Yes (Hospitalization, Other)
  Sender: FDA-Public Use
  Company Number: US-JNJFOC-20070902985

PATIENT
  Sex: Female
  Weight: 125.65 kg

DRUGS (6)
  1. DURAGESIC-100 [Suspect]
     Dosage: 2 X 100 UG/HR AND 1 X 50 UG/HR PATCHES
     Route: 062
  2. DURAGESIC-100 [Suspect]
     Route: 062
  3. DURAGESIC-100 [Suspect]
     Route: 062
  4. DURAGESIC-100 [Suspect]
     Indication: PAIN
     Dosage: 3 X 100 UG/HR PATCHES
     Route: 062
  5. OXYCODONE HCL [Concomitant]
     Indication: BREAKTHROUGH PAIN
     Route: 048
  6. DIURETIC [Concomitant]
     Indication: CARDIAC FAILURE CONGESTIVE
     Route: 048

REACTIONS (15)
  - BLOOD GLUCOSE INCREASED [None]
  - CARDIAC FAILURE CONGESTIVE [None]
  - DEPRESSED MOOD [None]
  - DYSPNOEA [None]
  - FATIGUE [None]
  - FLUID RETENTION [None]
  - HYPERTENSION [None]
  - MALAISE [None]
  - NAUSEA [None]
  - PAIN [None]
  - RENAL DISORDER [None]
  - SOMNOLENCE [None]
  - THERAPY CESSATION [None]
  - URINARY TRACT INFECTION [None]
  - WITHDRAWAL SYNDROME [None]
